FAERS Safety Report 13921312 (Version 1)
Quarter: 2017Q3

REPORT INFORMATION
  Report Type: Spontaneous
  Country: US (occurrence: US)
  Receive Date: 20170830
  Receipt Date: 20170830
  Transmission Date: 20171127
  Serious: Yes (Life-Threatening)
  Sender: FDA-Public Use
  Company Number: US-ONY, INC.-2025308

PATIENT
  Age: 1 Day
  Sex: Female

DRUGS (1)
  1. INFASURF [Suspect]
     Active Substance: CALFACTANT
     Indication: NEONATAL RESPIRATORY DISTRESS SYNDROME
     Route: 007
     Dates: start: 20170127, end: 20170127

REACTIONS (1)
  - Endotracheal intubation complication [Recovered/Resolved]

NARRATIVE: CASE EVENT DATE: 20170127
